FAERS Safety Report 17835289 (Version 2)
Quarter: 2020Q2

REPORT INFORMATION
  Report Type: Spontaneous
  Country: PE (occurrence: PE)
  Receive Date: 20200528
  Receipt Date: 20200529
  Transmission Date: 20200714
  Serious: Yes (Other)
  Sender: FDA-Public Use
  Company Number: PE-PFIZER INC-2020207759

PATIENT
  Age: 65 Year
  Sex: Male

DRUGS (2)
  1. FUROSEMIDE. [Concomitant]
     Active Substance: FUROSEMIDE
     Dosage: UNK
  2. ALDACTONE [Suspect]
     Active Substance: SPIRONOLACTONE
     Indication: ASCITES
     Dosage: 100 MG, 2X/DAY
     Dates: start: 201901

REACTIONS (3)
  - Gynaecomastia [Unknown]
  - Hepatic mass [Unknown]
  - Hepatic neoplasm [Not Recovered/Not Resolved]
